FAERS Safety Report 21822444 (Version 4)
Quarter: 2023Q1

REPORT INFORMATION
  Report Type: Spontaneous
  Country: US (occurrence: US)
  Receive Date: 20230105
  Receipt Date: 20230310
  Transmission Date: 20230418
  Serious: Yes (Life-Threatening, Hospitalization, Other)
  Sender: FDA-Public Use
  Company Number: US-BoehringerIngelheim-2023-BI-210990

PATIENT
  Age: 61 Year
  Sex: Male

DRUGS (1)
  1. JARDIANCE [Suspect]
     Active Substance: EMPAGLIFLOZIN
     Indication: Product used for unknown indication
     Route: 048
     Dates: start: 20210101

REACTIONS (5)
  - Diabetic ketoacidosis [Recovered/Resolved]
  - Renal injury [Recovered/Resolved]
  - Diabetic ketoacidosis [Unknown]
  - Blindness unilateral [Unknown]
  - Corneal deposits [Unknown]

NARRATIVE: CASE EVENT DATE: 20221224
